FAERS Safety Report 5865767-4 (Version None)
Quarter: 2008Q3

REPORT INFORMATION
  Report Type: 
  Country: None (occurrence: None)
  Receive Date: 20080829
  Receipt Date: 20080826
  Transmission Date: 20090109
  Serious: Yes (Hospitalization)
  Sender: FDA-Public Use
  Company Number: PHHY2008FR19169

PATIENT
  Sex: Male

DRUGS (3)
  1. TEGRETOL [Suspect]
     Dosage: UNK
     Dates: start: 20060824
  2. MORPHINE SULFATE [Suspect]
     Dosage: UNK
     Dates: start: 20060824
  3. MYOLASTAN [Suspect]
     Dosage: UNK
     Dates: start: 20060824

REACTIONS (4)
  - CYTOLYTIC HEPATITIS [None]
  - ISCHAEMIC HEPATITIS [None]
  - LUNG DISORDER [None]
  - SUICIDE ATTEMPT [None]
